FAERS Safety Report 11611276 (Version 5)
Quarter: 2018Q2

REPORT INFORMATION
  Report Type: Spontaneous
  Country: ES (occurrence: ES)
  Receive Date: 20151008
  Receipt Date: 20180526
  Transmission Date: 20180711
  Serious: Yes (Other)
  Sender: FDA-Public Use
  Company Number: ES-TEVA-598079ISR

PATIENT
  Age: 47 Year
  Sex: Female

DRUGS (22)
  1. ORFIDAL 1 MG COMPRIMIDOS, 25 COMPRIMIDOS [Suspect]
     Active Substance: LORAZEPAM
     Indication: DEPRESSION
     Dosage: 25 TABLETS
     Route: 065
  2. ZYPREXA [Suspect]
     Active Substance: OLANZAPINE
     Indication: DEPRESSION
     Dosage: 28 TABLETS
     Route: 065
  3. RISPERDAL [Suspect]
     Active Substance: RISPERIDONE
     Indication: DEPRESSION
     Dosage: 20 TABLETS
     Route: 065
  4. ANAFRANIL [Suspect]
     Active Substance: CLOMIPRAMINE HYDROCHLORIDE
     Indication: DEPRESSION
     Dosage: 75 MILLIGRAM DAILY; SLOTTED LACQUERED TABLETS, 28 TABLETS
     Route: 065
  5. ZARELIS RETARD 75 MG COMPRIMIDOS DE LIBERACION PROLONGADA , 30 COMPRIM [Suspect]
     Active Substance: VENLAFAXINE HYDROCHLORIDE
     Indication: DEPRESSION
     Dosage: 75 MILLIGRAM DAILY;
     Route: 065
  6. DEPRAX 100 MG COMPRIMIDOS RECUBIERTOS CON PELICULA EFG , 30 COMPRIMIDO [Suspect]
     Active Substance: TRAZODONE HYDROCHLORIDE
     Indication: DEPRESSION
     Dosage: 30 TABLETS
     Route: 065
  7. ROCOZ [Suspect]
     Active Substance: QUETIAPINE FUMARATE
     Indication: DEPRESSION
     Dosage: 60TABLETS
     Route: 065
  8. SEROQUEL [Suspect]
     Active Substance: QUETIAPINE FUMARATE
     Indication: DEPRESSION
     Dosage: 50 MILLIGRAM DAILY; 6 TABLETS
     Route: 065
  9. ROCOZ [Suspect]
     Active Substance: QUETIAPINE FUMARATE
     Indication: DEPRESSION
     Route: 065
  10. TRILEPTAL [Suspect]
     Active Substance: OXCARBAZEPINE
     Indication: DEPRESSION
     Dosage: 50TABLETS
     Route: 065
  11. CYMBALTA [Suspect]
     Active Substance: DULOXETINE HYDROCHLORIDE
     Indication: DEPRESSION
     Dosage: 7 CAPSULES
     Route: 065
  12. DEPAKINE [Suspect]
     Active Substance: VALPROATE SODIUM
     Indication: DEPRESSION
     Dosage: 200 MILLIGRAM DAILY; 40 COATED TABLETS
     Route: 065
  13. VANDRAL RETARD 75 MG CAPSULAS DURAS DE LIBERACION PROLONGADA, 30 CAPSU [Suspect]
     Active Substance: VENLAFAXINE HYDROCHLORIDE
     Dosage: 30 CAPSULES
     Route: 065
  14. ARIPIPRAZOLE. [Suspect]
     Active Substance: ARIPIPRAZOLE
     Indication: DEPRESSION
     Dosage: 5 MILLIGRAM DAILY; 28 TABLETS
     Route: 065
  15. VANDRAL RETARD 75 MG CAPSULAS DURAS DE LIBERACION PROLONGADA, 30 CAPSU [Suspect]
     Active Substance: VENLAFAXINE HYDROCHLORIDE
     Indication: DEPRESSION
     Dosage: 75 MILLIGRAM DAILY; 30 CAPSULES
     Route: 065
  16. INVEGA SUSTENNA [Suspect]
     Active Substance: PALIPERIDONE PALMITATE
     Indication: DEPRESSION
     Dosage: 28TABLETS
     Route: 065
  17. LUDIOMIL [Suspect]
     Active Substance: MAPROTILINE HYDROCHLORIDE
     Indication: DEPRESSION
     Dosage: 75 MILLIGRAM DAILY; 28 TABLETS
     Route: 065
  18. ANAFRANIL [Suspect]
     Active Substance: CLOMIPRAMINE HYDROCHLORIDE
     Dosage: 50 TABLETS
     Route: 065
  19. TRYPTIZOL [Suspect]
     Active Substance: AMITRIPTYLINE HYDROCHLORIDE
     Indication: DEPRESSION
     Dosage: 30 TABLETS
     Route: 065
  20. GABAPENTIN. [Suspect]
     Active Substance: GABAPENTIN
     Indication: DEPRESSION
     Dosage: 300 MILLIGRAM DAILY;
     Route: 065
  21. SINOGAN 25 MG COMPRIMIDOS RECUBIERTOS CON PELICULA, 20 COMPRIMIDOS [Suspect]
     Active Substance: LEVOMEPROMAZINE
     Indication: DEPRESSION
     Dosage: 20 TABLETS
     Route: 065
  22. SOLIAN 100 MG COMPRIMIDOS , 60 COMPRIMIDOS [Suspect]
     Active Substance: AMISULPRIDE
     Indication: DEPRESSION
     Dosage: 60 TABLETS
     Route: 065

REACTIONS (11)
  - Intestinal obstruction [Unknown]
  - Conjunctivitis [Unknown]
  - Off label use [Unknown]
  - Dry eye [Unknown]
  - Eye irritation [Unknown]
  - Visual impairment [Unknown]
  - Product use in unapproved indication [Unknown]
  - Vision blurred [Unknown]
  - Psoriasis [Unknown]
  - Constipation [Unknown]
  - Mental disorder [Unknown]
